FAERS Safety Report 6914531-3 (Version None)
Quarter: 2010Q3

REPORT INFORMATION
  Report Type: 
  Country: None (occurrence: None)
  Receive Date: 20100805
  Receipt Date: 20100805
  Transmission Date: 20110219
  Serious: No
  Sender: FDA-Public Use
  Company Number: None

PATIENT
  Sex: Female
  Weight: 63.5036 kg

DRUGS (2)
  1. CIPRO [Suspect]
     Indication: DIVERTICULITIS
     Dosage: 500MG BID PO
     Route: 048
     Dates: start: 20100731, end: 20100802
  2. CIPRO [Suspect]
     Indication: URINARY TRACT INFECTION
     Dosage: 500MG BID PO
     Route: 048
     Dates: start: 20100731, end: 20100802

REACTIONS (4)
  - BALANCE DISORDER [None]
  - GAIT DISTURBANCE [None]
  - PAIN IN EXTREMITY [None]
  - TREMOR [None]
